FAERS Safety Report 4538080-5 (Version None)
Quarter: 2004Q4

REPORT INFORMATION
  Report Type: 
  Country: None (occurrence: None)
  Receive Date: 20041221
  Receipt Date: 20030624
  Transmission Date: 20050328
  Serious: Yes (Other)
  Sender: FDA-Public Use
  Company Number: 200410532BBE

PATIENT
  Sex: Female

DRUGS (3)
  1. HYPRHO-D [Suspect]
     Indication: PREGNANCY
  2. INJECTABLE GLOBULIN (JOHNSON AND JOHNSON) (IMMUNOGLOBULINS) [Suspect]
     Indication: PREGNANCY
  3. INJECTABLE GLOBULIN (ORTHOCLININCAL DIAGNOSTICS ) (IMMUNOGLOBULINS) [Suspect]
     Indication: PREGNANCY

REACTIONS (2)
  - ADVERSE EVENT [None]
  - DRUG EXPOSURE DURING PREGNANCY [None]
